FAERS Safety Report 14741233 (Version 1)
Quarter: 2018Q2

REPORT INFORMATION
  Report Type: Report from Study
  Country: GB (occurrence: GB)
  Receive Date: 20180410
  Receipt Date: 20180410
  Transmission Date: 20180711
  Serious: Yes (Other)
  Sender: FDA-Public Use
  Company Number: PHHY2018GB017678

PATIENT
  Sex: Female

DRUGS (1)
  1. ERELZI [Suspect]
     Active Substance: ETANERCEPT-SZZS
     Indication: RHEUMATOID ARTHRITIS
     Dosage: 50 MG, QW
     Route: 058
     Dates: start: 20180123

REACTIONS (11)
  - Fatigue [Not Recovered/Not Resolved]
  - Skin mass [Unknown]
  - Wound secretion [Unknown]
  - Dry skin [Unknown]
  - General physical health deterioration [Unknown]
  - Visual impairment [Not Recovered/Not Resolved]
  - Quality of life decreased [Unknown]
  - Limb injury [Unknown]
  - Anxiety [Unknown]
  - Skin ulcer [Recovering/Resolving]
  - Hypoacusis [Not Recovered/Not Resolved]
